FAERS Safety Report 10203278 (Version 1)
Quarter: 2014Q2

REPORT INFORMATION
  Report Type: Spontaneous
  Country: US (occurrence: US)
  Receive Date: 20140529
  Receipt Date: 20140529
  Transmission Date: 20141212
  Serious: Yes (Other)
  Sender: FDA-Public Use
  Company Number: US-BRISTOL-MYERS SQUIBB COMPANY-20790549

PATIENT
  Age: 60 Year
  Sex: Female

DRUGS (1)
  1. BYDUREON [Suspect]
     Dates: start: 2014

REACTIONS (3)
  - Pancreatitis [Unknown]
  - Cholelithiasis [Unknown]
  - Cholecystectomy [Unknown]
